FAERS Safety Report 4305419-5 (Version None)
Quarter: 2004Q1

REPORT INFORMATION
  Report Type: 
  Country: None (occurrence: None)
  Receive Date: 20040226
  Receipt Date: 20031106
  Transmission Date: 20041129
  Serious: No
  Sender: FDA-Public Use
  Company Number: US-BRISTOL-MYERS SQUIBB COMPANY-12429353

PATIENT
  Sex: Female

DRUGS (9)
  1. TAXOL [Suspect]
     Indication: OVARIAN CANCER
     Dosage: ADMINISTERED OVER 3 HOURS
     Route: 042
     Dates: start: 20031105, end: 20031105
  2. BENADRYL [Concomitant]
     Indication: PREMEDICATION
     Route: 042
     Dates: start: 20031105
  3. PEPCID [Concomitant]
     Indication: PREMEDICATION
     Route: 042
     Dates: start: 20031105
  4. DECADRON [Concomitant]
     Indication: PREMEDICATION
     Route: 042
     Dates: start: 20031105
  5. NEURONTIN [Concomitant]
  6. COUMADIN [Concomitant]
  7. WELLBUTRIN [Concomitant]
  8. LOPRESSOR [Concomitant]
  9. DARVOCET-N 100 [Concomitant]

REACTIONS (5)
  - ABDOMINAL PAIN UPPER [None]
  - DIARRHOEA [None]
  - NAUSEA [None]
  - NEUROPATHY [None]
  - VOMITING [None]
